FAERS Safety Report 4555521-8 (Version None)
Quarter: 2005Q1

REPORT INFORMATION
  Report Type: 
  Country: None (occurrence: None)
  Receive Date: 20050118
  Receipt Date: 20050118
  Transmission Date: 20050727
  Serious: No
  Sender: FDA-Public Use
  Company Number: None

PATIENT

DRUGS (1)
  1. PROCARDIA XL [Suspect]

REACTIONS (2)
  - FEELING ABNORMAL [None]
  - REFUSAL OF TREATMENT BY PATIENT [None]
